FAERS Safety Report 6693194-9 (Version None)
Quarter: 2010Q2

REPORT INFORMATION
  Report Type: 
  Country: None (occurrence: None)
  Receive Date: 20100421
  Receipt Date: 20100421
  Transmission Date: 20101027
  Serious: Yes (Hospitalization)
  Sender: FDA-Public Use
  Company Number: None

PATIENT
  Age: 68 Year
  Sex: Male
  Weight: 84.9 kg

DRUGS (1)
  1. ZOLEDRONIC ACID [Suspect]
     Indication: PLEURAL EFFUSION
     Dosage: 3 MG IV EVERY 4 WEEKS
     Dates: start: 20100216, end: 20100329

REACTIONS (2)
  - ANAEMIA [None]
  - PNEUMONIA [None]
